FAERS Safety Report 10915727 (Version 1)
Quarter: 2015Q1

REPORT INFORMATION
  Report Type: Spontaneous
  Country: US (occurrence: US)
  Receive Date: 20150316
  Receipt Date: 20150316
  Transmission Date: 20150721
  Serious: Yes (Other)
  Sender: FDA-Public Use
  Company Number: US-JNJFOC-20150305088

PATIENT
  Age: 80 Year
  Sex: Male
  Weight: 112.49 kg

DRUGS (2)
  1. XARELTO [Suspect]
     Active Substance: RIVAROXABAN
     Indication: DEEP VEIN THROMBOSIS
     Route: 048
  2. XARELTO [Suspect]
     Active Substance: RIVAROXABAN
     Indication: DEEP VEIN THROMBOSIS
     Dosage: FOR 21 DAYS
     Route: 048

REACTIONS (8)
  - Haematoma [Unknown]
  - Activated partial thromboplastin time abnormal [Unknown]
  - International normalised ratio increased [Unknown]
  - Renal impairment [Unknown]
  - Haemorrhage [Unknown]
  - Muscle haemorrhage [Unknown]
  - Epistaxis [Unknown]
  - Faeces discoloured [Unknown]
